FAERS Safety Report 9018807 (Version 4)
Quarter: 2013Q1

REPORT INFORMATION
  Report Type: Spontaneous
  Country: NL (occurrence: NL)
  Receive Date: 20130118
  Receipt Date: 20130321
  Transmission Date: 20140127
  Serious: Yes (Death, Hospitalization)
  Sender: FDA-Public Use
  Company Number: NL-ELI_LILLY_AND_COMPANY-NL201301003991

PATIENT
  Age: 68 Year
  Sex: Female

DRUGS (6)
  1. ALIMTA [Suspect]
     Indication: LUNG ADENOCARCINOMA STAGE IV
     Dosage: UNK
     Dates: start: 201212
  2. CARBOPLATIN [Concomitant]
  3. CISPLATIN [Concomitant]
  4. VITAMIN B12 [Concomitant]
  5. FOLIC ACID [Concomitant]
  6. DEXAMETHASONE [Concomitant]

REACTIONS (3)
  - Arterial occlusive disease [Fatal]
  - Malignant neoplasm progression [Unknown]
  - Off label use [Unknown]
